FAERS Safety Report 7682206-1 (Version None)
Quarter: 2011Q3

REPORT INFORMATION
  Report Type: 
  Country: None (occurrence: None)
  Receive Date: 20110815
  Receipt Date: 20110811
  Transmission Date: 20111222
  Serious: No
  Sender: FDA-Public Use
  Company Number: US-PFIZER INC-2011185690

PATIENT
  Sex: Female

DRUGS (2)
  1. ZOLOFT [Suspect]
     Dosage: 50 MG, UNK
  2. ZOLOFT [Suspect]
     Dosage: 25 MG, UNK

REACTIONS (4)
  - NAUSEA [None]
  - SOMNOLENCE [None]
  - FEELING ABNORMAL [None]
  - MALAISE [None]
